FAERS Safety Report 8331220-1 (Version None)
Quarter: 2012Q2

REPORT INFORMATION
  Report Type: 
  Country: None (occurrence: None)
  Receive Date: 20120502
  Receipt Date: 20120426
  Transmission Date: 20120825
  Serious: Yes (Other)
  Sender: FDA-Public Use
  Company Number: US-PFIZER INC-2012105121

PATIENT

DRUGS (2)
  1. NORVASC [Suspect]
     Dosage: UNK
  2. NEURONTIN [Suspect]
     Dosage: UNK

REACTIONS (3)
  - PARKINSON'S DISEASE [None]
  - TREMOR [None]
  - FALL [None]
